FAERS Safety Report 23355110 (Version 1)
Quarter: 2024Q1

REPORT INFORMATION
  Report Type: Report from Study
  Country: CO (occurrence: CO)
  Receive Date: 20240102
  Receipt Date: 20240102
  Transmission Date: 20240409
  Serious: Yes (Hospitalization)
  Sender: FDA-Public Use
  Company Number: CO-ABBVIE-5566636

PATIENT
  Age: 45 Year
  Sex: Male
  Weight: 106 kg

DRUGS (2)
  1. ZEMPLAR [Suspect]
     Active Substance: PARICALCITOL
     Indication: Hyperparathyroidism secondary
     Route: 065
     Dates: start: 20230508, end: 20231201
  2. MIRCERA [Concomitant]
     Active Substance: METHOXY POLYETHYLENE GLYCOL-EPOETIN BETA
     Indication: Nephropathy
     Dosage: UNKNOWN

REACTIONS (4)
  - Acute myocardial infarction [Recovering/Resolving]
  - Discomfort [Unknown]
  - Chest discomfort [Unknown]
  - Cardiac disorder [Recovering/Resolving]

NARRATIVE: CASE EVENT DATE: 20230601
